FAERS Safety Report 22248546 (Version 1)
Quarter: 2023Q2

REPORT INFORMATION
  Report Type: Spontaneous
  Country: US (occurrence: US)
  Receive Date: 20230425
  Receipt Date: 20230425
  Transmission Date: 20230721
  Serious: Yes (Hospitalization, Other)
  Sender: FDA-Public Use
  Company Number: US-CTI BIOPHARMA-2023US03548

PATIENT

DRUGS (5)
  1. VONJO [Suspect]
     Active Substance: PACRITINIB
     Indication: Acute myeloid leukaemia
     Dosage: 200 MG, BID
     Route: 048
     Dates: start: 202303
  2. ALPRAZOLAM [Concomitant]
     Active Substance: ALPRAZOLAM
     Dosage: 0.25 MG
  3. JADENU [Concomitant]
     Active Substance: DEFERASIROX
     Dosage: 180 MG
  4. OXYCODONE [Concomitant]
     Active Substance: OXYCODONE
     Dosage: 10 MG
  5. VITAMIN D3 [Concomitant]
     Active Substance: CHOLECALCIFEROL
     Dosage: 50 MICROGRAM

REACTIONS (3)
  - Hepatic cirrhosis [Not Recovered/Not Resolved]
  - Haemoglobin decreased [Recovered/Resolved]
  - Product dose omission issue [Recovered/Resolved]

NARRATIVE: CASE EVENT DATE: 20230101
